FAERS Safety Report 20800998 (Version 2)
Quarter: 2022Q2

REPORT INFORMATION
  Report Type: Spontaneous
  Country: US (occurrence: US)
  Receive Date: 20220509
  Receipt Date: 20220524
  Transmission Date: 20220721
  Serious: Yes (Disabling, Other)
  Sender: FDA-Public Use
  Company Number: US-ORGANON-O2205USA000270

PATIENT
  Age: 16 Year
  Sex: Female
  Weight: 52.063 kg

DRUGS (4)
  1. NEXPLANON [Suspect]
     Active Substance: ETONOGESTREL
     Indication: Contraception
     Dosage: 68 MG (1 DEVICE) INSERTED ONCE
     Route: 059
     Dates: start: 20220405, end: 20220502
  2. NEXPLANON [Suspect]
     Active Substance: ETONOGESTREL
     Indication: Dysmenorrhoea
  3. NEXPLANON [Suspect]
     Active Substance: ETONOGESTREL
     Indication: Heavy menstrual bleeding
  4. NORGESTIMATE / ETHINYL ESTRADIOL [Concomitant]
     Indication: Contraception
     Dosage: UNK
     Dates: start: 20220425

REACTIONS (15)
  - Gait disturbance [Recovering/Resolving]
  - Seizure [Recovering/Resolving]
  - Gastroenteritis [Unknown]
  - Abdominal discomfort [Unknown]
  - Vaginal haemorrhage [Recovered/Resolved]
  - Heavy menstrual bleeding [Recovered/Resolved]
  - Pain [Unknown]
  - Abdominal pain [Unknown]
  - Nausea [Recovered/Resolved]
  - Vomiting [Recovered/Resolved]
  - Diarrhoea [Recovered/Resolved]
  - Asthenia [Recovering/Resolving]
  - Menstruation irregular [Recovered/Resolved]
  - Pyrexia [Recovering/Resolving]
  - Product use in unapproved indication [Unknown]

NARRATIVE: CASE EVENT DATE: 20220401
